FAERS Safety Report 8029135-1 (Version None)
Quarter: 2012Q1

REPORT INFORMATION
  Report Type: 
  Country: None (occurrence: None)
  Receive Date: 20120106
  Receipt Date: 20111228
  Transmission Date: 20120608
  Serious: Yes (Hospitalization)
  Sender: FDA-Public Use
  Company Number: PHHY2011JP114743

PATIENT
  Age: 80 Year
  Sex: Male

DRUGS (1)
  1. AFINITOR [Suspect]
     Indication: METASTATIC RENAL CELL CARCINOMA
     Dosage: 5 MG,DAILY
     Route: 048
     Dates: start: 20110630, end: 20111220

REACTIONS (3)
  - DYSPNOEA [None]
  - COMPUTERISED TOMOGRAM ABNORMAL [None]
  - COUGH [None]
